FAERS Safety Report 4688698-4 (Version None)
Quarter: 2005Q2

REPORT INFORMATION
  Report Type: 
  Country: None (occurrence: None)
  Receive Date: 20050613
  Receipt Date: 20050601
  Transmission Date: 20051028
  Serious: Yes (Other)
  Sender: FDA-Public Use
  Company Number: PHBS2005BE07848

PATIENT
  Age: 46 Year
  Sex: Male
  Weight: 82 kg

DRUGS (7)
  1. SANDIMMUNE [Suspect]
     Indication: PSORIASIS
     Dosage: 100 MG/D
     Route: 048
     Dates: start: 20020701, end: 20030501
  2. SANDIMMUNE [Suspect]
     Dosage: 50 MG/D
     Route: 048
     Dates: start: 20030501, end: 20030901
  3. SANDIMMUNE [Suspect]
     Dosage: 50 MG, TID
     Route: 048
     Dates: start: 20050321, end: 20050417
  4. SANDIMMUNE [Suspect]
     Dosage: 250 MG/D
     Route: 048
     Dates: start: 20050418, end: 20050508
  5. SANDIMMUNE [Suspect]
     Dosage: 4 MG/KG/D
     Route: 048
     Dates: start: 20050509
  6. SANDIMMUNE [Suspect]
     Dosage: UNK, UNK
     Route: 048
     Dates: start: 20011101, end: 20020401
  7. CHOLESTEROL- AND TRIGLYCERIDE REDUCERS [Concomitant]

REACTIONS (8)
  - ARTHRALGIA [None]
  - BLOOD CHOLESTEROL INCREASED [None]
  - BLOOD URIC ACID INCREASED [None]
  - FEELING HOT [None]
  - HYPERTRIGLYCERIDAEMIA [None]
  - MUSCLE SPASMS [None]
  - NECK PAIN [None]
  - THERAPY NON-RESPONDER [None]
